FAERS Safety Report 17876194 (Version 4)
Quarter: 2020Q4

REPORT INFORMATION
  Report Type: Report from Study
  Country: BE (occurrence: BE)
  Receive Date: 20200609
  Receipt Date: 20201007
  Transmission Date: 20210113
  Serious: Yes (Death, Hospitalization, Other)
  Sender: FDA-Public Use
  Company Number: NVSC2020BE158168

PATIENT
  Age: 81 Year
  Sex: Male
  Weight: 71.1 kg

DRUGS (4)
  1. GLIVEC [Suspect]
     Active Substance: IMATINIB MESYLATE
     Indication: CHRONIC MYELOID LEUKAEMIA
     Dosage: 400 MG
     Route: 048
     Dates: start: 20191203, end: 20200120
  2. GLIVEC [Suspect]
     Active Substance: IMATINIB MESYLATE
     Indication: MYELOPROLIFERATIVE NEOPLASM
  3. FLOXAPEN [Concomitant]
     Active Substance: FLUCLOXACILLIN
     Indication: PRODUCT USED FOR UNKNOWN INDICATION
     Dosage: UNK
     Route: 065
  4. GLIVEC [Suspect]
     Active Substance: IMATINIB MESYLATE
     Indication: EOSINOPHILIA

REACTIONS (20)
  - Blood pressure diastolic decreased [Unknown]
  - Nausea [Unknown]
  - Gastrointestinal vascular malformation haemorrhagic [Fatal]
  - Melaena [Unknown]
  - Leukocyturia [Unknown]
  - Pleural effusion [Unknown]
  - Diverticulum intestinal [Unknown]
  - Asthenia [Unknown]
  - Oedema [Unknown]
  - Pyrexia [Unknown]
  - Disease recurrence [Unknown]
  - Staphylococcal bacteraemia [Unknown]
  - Renal impairment [Unknown]
  - Thrombophlebitis [Unknown]
  - Fluid overload [Unknown]
  - Jejunal perforation [Fatal]
  - Glomerular filtration rate decreased [Unknown]
  - Ascites [Unknown]
  - White blood cell count increased [Unknown]
  - Normocytic anaemia [Unknown]

NARRATIVE: CASE EVENT DATE: 20191226
